FAERS Safety Report 7420408-X (Version None)
Quarter: 2011Q2

REPORT INFORMATION
  Report Type: 
  Country: None (occurrence: None)
  Receive Date: 20110418
  Receipt Date: 20110412
  Transmission Date: 20111010
  Serious: No
  Sender: FDA-Public Use
  Company Number: US-PFIZER INC-2011080690

PATIENT
  Age: 48 Year
  Sex: Female

DRUGS (3)
  1. AMLODIPINE/ HYDROCHLOROTHIAZIDE/ VALSARTAN [Concomitant]
     Indication: HYPERTENSION
     Dosage: 10/320/25MG DAILY
     Route: 048
  2. PRISTIQ [Suspect]
     Indication: DEPRESSION
     Dosage: 50 MG, 1X/DAY
     Route: 048
     Dates: start: 20110331, end: 20110411
  3. NEBIVOLOL [Concomitant]
     Indication: HYPERTENSION
     Dosage: 5 MG, 1X/DAY
     Route: 048

REACTIONS (1)
  - DIZZINESS [None]
